FAERS Safety Report 5323346-1 (Version None)
Quarter: 2007Q2

REPORT INFORMATION
  Report Type: 
  Country: None (occurrence: None)
  Receive Date: 20070514
  Receipt Date: 20070509
  Transmission Date: 20071010
  Serious: Yes (Other)
  Sender: FDA-Public Use
  Company Number: HQWYE945702MAY07

PATIENT
  Age: 49 Year
  Sex: Male

DRUGS (6)
  1. TYGACIL [Suspect]
     Indication: ABDOMINAL INFECTION
     Dosage: UNKNOWN
     Route: 042
     Dates: start: 20070420, end: 20070429
  2. TYGACIL [Interacting]
     Indication: DIVERTICULAR PERFORATION
  3. WARFARIN [Interacting]
     Indication: PULMONARY EMBOLISM
     Dosage: 5 MG
     Dates: start: 20070401, end: 20070401
  4. WARFARIN [Interacting]
     Dosage: 7.5 MG
     Dates: start: 20070401, end: 20070426
  5. WARFARIN [Interacting]
     Dosage: 10 MG
     Dates: start: 20070426
  6. HEPARIN-FRACTION, SODIUM SALT [Concomitant]
     Indication: PULMONARY EMBOLISM
     Dosage: UNKNOWN
     Dates: start: 20070401, end: 20070401

REACTIONS (3)
  - DRUG INTERACTION [None]
  - INTERNATIONAL NORMALISED RATIO ABNORMAL [None]
  - PULMONARY EMBOLISM [None]
